FAERS Safety Report 4813583-4 (Version None)
Quarter: 2005Q4

REPORT INFORMATION
  Report Type: 
  Country: None (occurrence: None)
  Receive Date: 20051028
  Receipt Date: 20050228
  Transmission Date: 20060501
  Serious: No
  Sender: FDA-Public Use
  Company Number: US-GLAXOSMITHKLINE-A0547600A

PATIENT

DRUGS (7)
  1. ADVAIR DISKUS 100/50 [Suspect]
     Indication: ASTHMA
     Route: 055
  2. TOPAMAX [Concomitant]
  3. BUSPAR [Concomitant]
  4. PROZAC [Concomitant]
  5. NEXIUM [Concomitant]
  6. SINGULAIR [Concomitant]
  7. DITROPAN [Concomitant]

REACTIONS (1)
  - ORAL CANDIDIASIS [None]
